FAERS Safety Report 22004638 (Version 1)
Quarter: 2023Q1

REPORT INFORMATION
  Report Type: Spontaneous
  Country: US (occurrence: None)
  Receive Date: 20230215
  Receipt Date: 20230215
  Transmission Date: 20230418
  Serious: Yes (Other)
  Sender: FDA-Public Use
  Company Number: None

PATIENT
  Age: 57 Year
  Sex: Female
  Weight: 77.56 kg

DRUGS (1)
  1. LEVOTHYROXINE [Suspect]
     Active Substance: LEVOTHYROXINE
     Indication: Hypothyroidism
     Dosage: FREQUENCY : DAILY;?
     Route: 048
     Dates: start: 201005, end: 201102

REACTIONS (8)
  - Irritability [None]
  - Temperature intolerance [None]
  - Fatigue [None]
  - Abdominal discomfort [None]
  - Nausea [None]
  - Headache [None]
  - Palpitations [None]
  - Dysphagia [None]

NARRATIVE: CASE EVENT DATE: 20110201
